FAERS Safety Report 9703404 (Version 1)
Quarter: 2013Q4

REPORT INFORMATION
  Report Type: Spontaneous
  Country: FR (occurrence: FR)
  Receive Date: 20131122
  Receipt Date: 20131122
  Transmission Date: 20140711
  Serious: Yes (Hospitalization)
  Sender: FDA-Public Use
  Company Number: PHHY2013FR133502

PATIENT
  Age: 90 Year
  Sex: Female

DRUGS (9)
  1. VOLTARENE [Suspect]
     Dosage: 50 MG, TID
     Route: 048
     Dates: end: 20130820
  2. METFORMIN [Suspect]
     Dosage: 1000 MG, QD
     Route: 048
     Dates: end: 20130820
  3. PRAVASTATIN SODIUM [Suspect]
     Dosage: 20 MG, QD
     Route: 048
     Dates: end: 20130820
  4. OMEPRAZOLE [Suspect]
     Dosage: 20 MG, QD
     Route: 048
     Dates: end: 20130820
  5. FUROSEMIDE [Suspect]
     Dosage: 40 MG, QD
     Route: 048
     Dates: end: 20130820
  6. GLICLAZIDE [Suspect]
     Dosage: 1 G, QD
     Route: 048
     Dates: end: 20130820
  7. TRAMADOL [Suspect]
     Dosage: 50 MG, QD
     Route: 048
     Dates: end: 20130820
  8. DITROPAN [Suspect]
     Dosage: 5 MG, QD
     Route: 048
     Dates: end: 20130820
  9. MIANSERIN [Concomitant]
     Dosage: 1 DF, QD

REACTIONS (2)
  - Rhabdomyolysis [Recovering/Resolving]
  - Renal failure acute [Recovering/Resolving]
